FAERS Safety Report 8926130 (Version 1)
Quarter: 2012Q4

REPORT INFORMATION
  Report Type: 
  Country: US (occurrence: US)
  Receive Date: 20121126
  Receipt Date: 20121126
  Transmission Date: 20130627
  Serious: No
  Sender: FDA-Public Use
  Company Number: US-JNJFOC-20121107476

PATIENT
  Sex: Male
  Weight: 81.65 kg

DRUGS (2)
  1. DURAGESIC [Suspect]
     Indication: PAIN
     Route: 062
     Dates: start: 201201
  2. OXYCODONE [Concomitant]
     Indication: PAIN
     Dosage: up to 9 mg a day
     Route: 048
     Dates: start: 201201

REACTIONS (5)
  - Product quality issue [Not Recovered/Not Resolved]
  - Product quality issue [Unknown]
  - Product quality issue [Unknown]
  - Wrong technique in drug usage process [Unknown]
  - Application site reaction [Not Recovered/Not Resolved]
